FAERS Safety Report 9578470 (Version 1)
Quarter: 2013Q4

REPORT INFORMATION
  Report Type: Spontaneous
  Country: US (occurrence: US)
  Receive Date: 20131001
  Receipt Date: 20131001
  Transmission Date: 20140711
  Serious: No
  Sender: FDA-Public Use
  Company Number: US-AMGEN-USASP2013013259

PATIENT
  Sex: Female
  Weight: 81.63 kg

DRUGS (18)
  1. ENBREL [Suspect]
     Indication: PSORIASIS
     Dosage: 50 MG, QWK
     Route: 058
     Dates: start: 2007, end: 2010
  2. ADVAIR [Concomitant]
     Dosage: UNK
  3. ALPRAZOLAM [Concomitant]
     Dosage: UNK
  4. AMLODIPINE [Concomitant]
     Dosage: UNK
  5. EYE                                /00419602/ [Concomitant]
     Dosage: UNK
  6. FIBER [Concomitant]
     Dosage: UNK
  7. FISH OIL [Concomitant]
     Dosage: UNK
  8. GLUCOSAMINE [Concomitant]
     Dosage: UNK
  9. MUCINEX [Concomitant]
     Dosage: UNK
  10. OMEPRAZOLE [Concomitant]
     Dosage: UNK
  11. HUMIRA [Concomitant]
     Dosage: UNK
  12. PAXIL                              /00500401/ [Concomitant]
     Dosage: UNK
  13. PREDNISONE [Concomitant]
     Dosage: UNK
  14. PROVENTIL                          /00139501/ [Concomitant]
     Dosage: UNK
  15. RANITIDINE [Concomitant]
     Dosage: UNK
  16. ALLERGY                            /00000402/ [Concomitant]
     Dosage: UNK
  17. SPIRIVA [Concomitant]
     Dosage: UNK
  18. VITAMIN D                          /00107901/ [Concomitant]
     Dosage: UNK

REACTIONS (1)
  - Therapeutic response decreased [Recovered/Resolved]
